FAERS Safety Report 9468586 (Version 1)
Quarter: 2013Q3

REPORT INFORMATION
  Report Type: Spontaneous
  Country: US (occurrence: None)
  Receive Date: 20130816
  Receipt Date: 20130816
  Transmission Date: 20140515
  Serious: Yes (Life-Threatening, Hospitalization, Other)
  Sender: FDA-Public Use
  Company Number: ALK-2013-001674

PATIENT
  Age: 58 Year
  Sex: Male
  Weight: 81.6 kg

DRUGS (1)
  1. VIVITROL (VIVITROL_NDA) INJECTION, 380 MG [Suspect]
     Indication: ALCOHOLISM
     Dosage: QMO
     Route: 030
     Dates: start: 20120531, end: 20120725

REACTIONS (7)
  - Subdural haematoma [None]
  - Alcohol use [None]
  - Alcoholism [None]
  - Fall [None]
  - Drug effect increased [None]
  - Drug ineffective [None]
  - Product quality issue [None]
